FAERS Safety Report 7986633-4 (Version None)
Quarter: 2011Q4

REPORT INFORMATION
  Report Type: 
  Country: None (occurrence: None)
  Receive Date: 20111216
  Receipt Date: 20110209
  Transmission Date: 20120403
  Serious: No
  Sender: FDA-Public Use
  Company Number: US-BRISTOL-MYERS SQUIBB COMPANY-15541279

PATIENT
  Sex: Female

DRUGS (2)
  1. ABILIFY [Suspect]
     Indication: BIPOLAR DISORDER
     Dosage: STARTED ABILIFY 3 WEEKS AGO
     Dates: start: 20110101
  2. EFFEXOR [Concomitant]

REACTIONS (4)
  - DISTURBANCE IN ATTENTION [None]
  - ABDOMINAL DISTENSION [None]
  - HUNGER [None]
  - RESTLESSNESS [None]
